FAERS Safety Report 16390101 (Version 1)
Quarter: 2019Q2

REPORT INFORMATION
  Report Type: Report from Study
  Country: BR (occurrence: BR)
  Receive Date: 20190604
  Receipt Date: 20190604
  Transmission Date: 20190711
  Serious: No
  Sender: FDA-Public Use
  Company Number: BR-JNJFOC-20190533882

PATIENT
  Sex: Female

DRUGS (2)
  1. LOSARTAN. [Concomitant]
     Active Substance: LOSARTAN
     Indication: HYPERTENSION
     Route: 065
  2. STELARA [Suspect]
     Active Substance: USTEKINUMAB
     Indication: PSORIASIS
     Route: 058
     Dates: end: 201810

REACTIONS (10)
  - Swelling [Unknown]
  - Bacterial infection [Unknown]
  - Psoriasis [Not Recovered/Not Resolved]
  - Dysgeusia [Unknown]
  - Dyspepsia [Unknown]
  - Emotional disorder [Recovering/Resolving]
  - Eating disorder [Unknown]
  - Dizziness [Recovered/Resolved]
  - Tremor [Recovered/Resolved]
  - Liver function test abnormal [Unknown]
